FAERS Safety Report 7060723-5 (Version None)
Quarter: 2010Q4

REPORT INFORMATION
  Report Type: 
  Country: None (occurrence: None)
  Receive Date: 20101025
  Receipt Date: 20101014
  Transmission Date: 20110411
  Serious: Yes (Hospitalization)
  Sender: FDA-Public Use
  Company Number: SE-ROCHE-734081

PATIENT
  Age: 59 Year
  Sex: Female

DRUGS (7)
  1. CELLCEPT [Suspect]
     Indication: PROPHYLAXIS
     Dosage: DOSE: 2GMD
     Route: 048
     Dates: start: 20100601, end: 20100901
  2. PANTOLOC [Suspect]
     Indication: PRODUCT USED FOR UNKNOWN INDICATION
     Dosage: DOSE: 40MGD: PANTOLOC GASTRO-RESISTANT TABLET 40MG
     Route: 048
     Dates: end: 20100823
  3. PROGRAF [Concomitant]
     Dosage: PROGRAF CAPSULE 1MG
     Route: 048
  4. VALCYTE [Concomitant]
     Dosage: VALCYTE FC TABLET 450MG
     Route: 048
  5. PAMOL [Concomitant]
     Dosage: PAMOL FC TABLET
  6. BACTRIM [Concomitant]
     Dosage: TABLET 400MG/80MG
     Route: 048
  7. FRAGMIN INJECTABLE [Concomitant]
     Dosage: FRAGMIN SOLUTION FOR INJECTION : 2500U/ML
     Route: 042

REACTIONS (3)
  - DIARRHOEA [None]
  - NAUSEA [None]
  - TUBULOINTERSTITIAL NEPHRITIS [None]
